FAERS Safety Report 6446845-8 (Version None)
Quarter: 2009Q4

REPORT INFORMATION
  Report Type: 
  Country: None (occurrence: None)
  Receive Date: 20091119
  Receipt Date: 20091110
  Transmission Date: 20100525
  Serious: Yes (Other)
  Sender: FDA-Public Use
  Company Number: GB-JNJFOC-20091103079

PATIENT
  Age: 51 Year
  Sex: Female
  Weight: 66 kg

DRUGS (9)
  1. REMICADE [Suspect]
     Route: 042
  2. REMICADE [Suspect]
     Indication: RHEUMATOID ARTHRITIS
     Route: 042
  3. DIHYDROCODEINE BITARTRATE INJ [Concomitant]
  4. MELOXICAM [Concomitant]
  5. PROPRANOLOL [Concomitant]
  6. PROZAC [Concomitant]
  7. TRAMADOL [Concomitant]
  8. METHOTREXATE [Concomitant]
  9. PARACETAMOL [Concomitant]

REACTIONS (1)
  - PITUITARY TUMOUR BENIGN [None]
